FAERS Safety Report 6133039-9 (Version None)
Quarter: 2009Q1

REPORT INFORMATION
  Report Type: 
  Country: None (occurrence: None)
  Receive Date: 20090326
  Receipt Date: 20081202
  Transmission Date: 20090719
  Serious: Yes (Other)
  Sender: FDA-Public Use
  Company Number: GB-PFIZER INC-2008091076

PATIENT

DRUGS (1)
  1. CAVERJECT DUAL CHAMBER [Suspect]
     Indication: ERECTILE DYSFUNCTION

REACTIONS (4)
  - DRUG INEFFECTIVE [None]
  - INJECTION SITE SWELLING [None]
  - PENILE PAIN [None]
  - PENIS DISORDER [None]
